FAERS Safety Report 5779701-9 (Version None)
Quarter: 2008Q2

REPORT INFORMATION
  Report Type: 
  Country: None (occurrence: None)
  Receive Date: 20080617
  Receipt Date: 20080605
  Transmission Date: 20081010
  Serious: Yes (Hospitalization)
  Sender: FDA-Public Use
  Company Number: 2008-176784-NL

PATIENT
  Age: 28 Year
  Sex: Female

DRUGS (6)
  1. NUVARING [Suspect]
     Indication: CONTRACEPTION
     Dosage: DF VAGINAL
     Route: 067
     Dates: start: 20071001, end: 20080101
  2. MIGRAEFLUX [Concomitant]
  3. GRIPPOSTAD [Concomitant]
  4. ACETAMINOPHEN [Concomitant]
  5. FUROSEMIDE [Concomitant]
  6. CANDESARTAN [Concomitant]

REACTIONS (9)
  - DIALYSIS [None]
  - DRUG EXPOSURE DURING PREGNANCY [None]
  - GENERAL PHYSICAL HEALTH DETERIORATION [None]
  - HAEMOLYTIC URAEMIC SYNDROME [None]
  - MENORRHAGIA [None]
  - MICROANGIOPATHIC HAEMOLYTIC ANAEMIA [None]
  - RENAL FAILURE [None]
  - THROMBOTIC THROMBOCYTOPENIC PURPURA [None]
  - UNINTENDED PREGNANCY [None]
